FAERS Safety Report 11448887 (Version 4)
Quarter: 2016Q1

REPORT INFORMATION
  Report Type: Report from Study
  Country: US (occurrence: US)
  Receive Date: 20150902
  Receipt Date: 20160204
  Transmission Date: 20160525
  Serious: Yes (Death, Hospitalization)
  Sender: FDA-Public Use
  Company Number: US-JNJFOC-20150900973

PATIENT
  Age: 69 Year
  Sex: Male
  Weight: 100 kg

DRUGS (13)
  1. IMBRUVICA [Suspect]
     Active Substance: IBRUTINIB
     Indication: CHRONIC LYMPHOCYTIC LEUKAEMIA
     Route: 048
     Dates: start: 20150616, end: 2015
  2. COUMADIN [Suspect]
     Active Substance: WARFARIN SODIUM
     Indication: ATRIAL FIBRILLATION
     Dosage: MONDAY, WEDNESDAY, FRIDAY
     Route: 065
     Dates: start: 2015
  3. COUMADIN [Suspect]
     Active Substance: WARFARIN SODIUM
     Indication: ATRIAL FIBRILLATION
     Route: 065
     Dates: start: 201509, end: 2015
  4. FENTANYL. [Concomitant]
     Active Substance: FENTANYL
  5. NORCO [Concomitant]
     Active Substance: ACETAMINOPHEN\HYDROCODONE BITARTRATE
     Dosage: 5/325 EVERY 4 HRS. AS NEEDED
  6. COUMADIN [Suspect]
     Active Substance: WARFARIN SODIUM
     Indication: ATRIAL FIBRILLATION
     Route: 065
     Dates: start: 201509, end: 2015
  7. COUMADIN [Suspect]
     Active Substance: WARFARIN SODIUM
     Indication: ATRIAL FIBRILLATION
     Route: 065
     Dates: end: 2015
  8. COMBIVENT [Concomitant]
     Active Substance: ALBUTEROL SULFATE\IPRATROPIUM BROMIDE
     Indication: WHEEZING
     Dosage: 1 INHALATION EVERY 4 HRS. AS NEEDED
  9. IMBRUVICA [Suspect]
     Active Substance: IBRUTINIB
     Indication: CHRONIC LYMPHOCYTIC LEUKAEMIA
     Route: 048
     Dates: start: 2015
  10. BENZONATATE. [Concomitant]
     Active Substance: BENZONATATE
     Dosage: AS NEEDED
  11. RITUXAN [Concomitant]
     Active Substance: RITUXIMAB
     Indication: CHRONIC LYMPHOCYTIC LEUKAEMIA
     Dates: start: 201506, end: 20150721
  12. LEVOFLOXACIN. [Concomitant]
     Active Substance: LEVOFLOXACIN
  13. PREDNISONE. [Concomitant]
     Active Substance: PREDNISONE

REACTIONS (17)
  - Pulmonary oedema [Unknown]
  - Malignant pleural effusion [Unknown]
  - Dyspnoea exertional [Unknown]
  - Hypochromic anaemia [Unknown]
  - Leukocytosis [Unknown]
  - Dermatitis acneiform [Unknown]
  - Atrial fibrillation [Recovered/Resolved]
  - Ecchymosis [Unknown]
  - International normalised ratio increased [Unknown]
  - Oedema peripheral [Recovered/Resolved]
  - Haematuria [Unknown]
  - Non-small cell lung cancer [Fatal]
  - Malnutrition [Unknown]
  - Deep vein thrombosis [Unknown]
  - Acute respiratory failure [Unknown]
  - Weight decreased [Recovering/Resolving]
  - Haemolysis [Unknown]

NARRATIVE: CASE EVENT DATE: 2015
